FAERS Safety Report 6833635-7 (Version None)
Quarter: 2010Q3

REPORT INFORMATION
  Report Type: 
  Country: None (occurrence: None)
  Receive Date: 20100712
  Receipt Date: 20070327
  Transmission Date: 20110219
  Serious: No
  Sender: FDA-Public Use
  Company Number: US-PFIZER INC-2007026363

PATIENT
  Sex: Female
  Weight: 64.86 kg

DRUGS (8)
  1. CHANTIX [Suspect]
     Indication: SMOKING CESSATION THERAPY
     Dates: start: 20070311
  2. ADDERALL 10 [Interacting]
     Dates: end: 20070325
  3. LEXAPRO [Concomitant]
  4. XANAX [Concomitant]
  5. FLEXERIL [Concomitant]
     Indication: BACK PAIN
  6. PLAVIX [Concomitant]
     Indication: CORONARY ARTERY DISEASE
  7. FOSAMAX [Concomitant]
  8. DARVOCET [Concomitant]
     Indication: BACK PAIN

REACTIONS (13)
  - BACK PAIN [None]
  - CHEST PAIN [None]
  - DIZZINESS [None]
  - DRUG DOSE OMISSION [None]
  - DRUG INTERACTION [None]
  - DYSPEPSIA [None]
  - DYSPNOEA [None]
  - FATIGUE [None]
  - HEADACHE [None]
  - NAUSEA [None]
  - THIRST [None]
  - VISION BLURRED [None]
  - WITHDRAWAL SYNDROME [None]
